FAERS Safety Report 5611077-X (Version None)
Quarter: 2008Q1

REPORT INFORMATION
  Report Type: 
  Country: None (occurrence: None)
  Receive Date: 20080129
  Receipt Date: 20080119
  Transmission Date: 20080703
  Serious: Yes (Life-Threatening, Hospitalization, Other)
  Sender: FDA-Public Use
  Company Number: 08H-163-0313736-00

PATIENT
  Age: 38 Year
  Sex: Female
  Weight: 72.5755 kg

DRUGS (18)
  1. FENTANYL CITRATE [Suspect]
     Indication: ANAESTHESIA
     Dosage: 250MCG, DIVIDED DOSES, INTRAVENOUS
     Route: 042
     Dates: start: 20071219, end: 20071219
  2. MORPHINE SULFATE INJ [Suspect]
     Indication: ABDOMINAL PAIN
     Dosage: 5MG, ONCE, INTRAVENOUS; 4 MG, ONCE, INTRAVENOUS
     Route: 042
     Dates: start: 20071219, end: 20071219
  3. MORPHINE SULFATE INJ [Suspect]
     Indication: ANALGESIA
     Dosage: 5MG, ONCE, INTRAVENOUS; 4 MG, ONCE, INTRAVENOUS
     Route: 042
     Dates: start: 20071219, end: 20071219
  4. MORPHINE SULFATE INJ [Suspect]
     Indication: ABDOMINAL PAIN
     Dosage: 5MG, ONCE, INTRAVENOUS; 4 MG, ONCE, INTRAVENOUS
     Route: 042
     Dates: start: 20071219, end: 20071219
  5. MORPHINE SULFATE INJ [Suspect]
     Indication: ANALGESIA
     Dosage: 5MG, ONCE, INTRAVENOUS; 4 MG, ONCE, INTRAVENOUS
     Route: 042
     Dates: start: 20071219, end: 20071219
  6. MORPHINE SULFATE INJ [Suspect]
     Indication: ABDOMINAL PAIN
     Dosage: 5MG, ONCE, INTRAVENOUS; 4 MG, ONCE, INTRAVENOUS
     Route: 042
     Dates: start: 20071219, end: 20071219
  7. MORPHINE SULFATE INJ [Suspect]
     Indication: ANALGESIA
     Dosage: 5MG, ONCE, INTRAVENOUS; 4 MG, ONCE, INTRAVENOUS
     Route: 042
     Dates: start: 20071219, end: 20071219
  8. MORPHINE SULFATE INJ [Suspect]
     Indication: ABDOMINAL PAIN
     Dosage: 5MG, ONCE, INTRAVENOUS; 4 MG, ONCE, INTRAVENOUS
     Route: 042
     Dates: start: 20071219, end: 20071219
  9. MORPHINE SULFATE INJ [Suspect]
     Indication: ANALGESIA
     Dosage: 5MG, ONCE, INTRAVENOUS; 4 MG, ONCE, INTRAVENOUS
     Route: 042
     Dates: start: 20071219, end: 20071219
  10. NIMBEX [Concomitant]
  11. BLINDED THERAPY SCH 619734 (INVESTIGATIONAL DRUG) [Concomitant]
  12. SEVOFLURANE [Concomitant]
  13. NITROUS OXIDE W/ OXYGEN [Concomitant]
  14. DIPRIVAN [Concomitant]
  15. ANECTINE [Concomitant]
  16. VERSED [Concomitant]
  17. TORADOL [Concomitant]
  18. ZOFRAN [Concomitant]

REACTIONS (5)
  - APNOEA [None]
  - NAUSEA [None]
  - POST PROCEDURAL COMPLICATION [None]
  - RESPIRATORY RATE DECREASED [None]
  - UNRESPONSIVE TO STIMULI [None]
